FAERS Safety Report 7070979-0 (Version None)
Quarter: 2010Q4

REPORT INFORMATION
  Report Type: 
  Country: None (occurrence: None)
  Receive Date: 20101029
  Receipt Date: 20100527
  Transmission Date: 20110411
  Serious: Yes (Other)
  Sender: FDA-Public Use
  Company Number: US-ASTRAZENECA-2010SE50995

PATIENT
  Age: 17727 Day
  Sex: Female

DRUGS (6)
  1. SEROQUEL [Suspect]
     Dosage: TOOK 6 SEROQUEL
     Route: 048
     Dates: start: 20080423
  2. FLUOXETINE [Concomitant]
  3. RANITIDINE HCL [Concomitant]
  4. TRAMADOL HCL [Concomitant]
  5. KLONOPIN [Concomitant]
  6. MULTI-VITAMIN [Concomitant]

REACTIONS (3)
  - DEPRESSION [None]
  - INTENTIONAL OVERDOSE [None]
  - SUICIDAL IDEATION [None]
